FAERS Safety Report 18188029 (Version 1)
Quarter: 2020Q3

REPORT INFORMATION
  Report Type: Spontaneous
  Country: DE (occurrence: DE)
  Receive Date: 20200824
  Receipt Date: 20200824
  Transmission Date: 20201103
  Serious: Yes (Hospitalization)
  Sender: FDA-Public Use
  Company Number: DE-TEVA-2020-DE-1817102

PATIENT
  Age: 47 Year
  Sex: Female

DRUGS (6)
  1. PERTUZUMAB. [Suspect]
     Active Substance: PERTUZUMAB
     Dates: end: 20200513
  2. DOCETAXEL. [Suspect]
     Active Substance: DOCETAXEL
     Dates: end: 20200513
  3. THIAMAZOL [Concomitant]
     Active Substance: METHIMAZOLE
     Dosage: .5 DOSAGE FORMS DAILY; 20 MG, 0.5?0?0?0
  4. CARBOPLATIN. [Suspect]
     Active Substance: CARBOPLATIN
     Dates: end: 20200513
  5. TRASTUZUMAB. [Suspect]
     Active Substance: TRASTUZUMAB
     Dates: end: 20200513
  6. LEVOFLOXACIN. [Suspect]
     Active Substance: LEVOFLOXACIN
     Dates: start: 20200518

REACTIONS (3)
  - Pyrexia [Unknown]
  - Nausea [Unknown]
  - Vomiting [Unknown]
